FAERS Safety Report 4957776-4 (Version None)
Quarter: 2006Q1

REPORT INFORMATION
  Report Type: 
  Country: None (occurrence: None)
  Receive Date: 20060324
  Receipt Date: 20051018
  Transmission Date: 20060701
  Serious: Yes (Hospitalization, Other)
  Sender: FDA-Public Use
  Company Number: 2006036574

PATIENT
  Age: 63 Year
  Sex: Female

DRUGS (5)
  1. CELEBREX [Suspect]
     Indication: RHEUMATOID ARTHRITIS
     Dosage: 200 MG
     Dates: start: 20011005, end: 20030601
  2. METHOTREXATE [Concomitant]
  3. SYNTHROID [Concomitant]
  4. FOLIC ACID [Concomitant]
  5. FUROSEMIDE [Concomitant]

REACTIONS (22)
  - ABDOMINAL HAEMATOMA [None]
  - AGITATION [None]
  - BLOOD ALBUMIN DECREASED [None]
  - BONE PAIN [None]
  - CARDIAC MYXOMA [None]
  - CONVULSION [None]
  - EMBOLIC CEREBRAL INFARCTION [None]
  - FALL [None]
  - FEELING ABNORMAL [None]
  - GASTROINTESTINAL CANDIDIASIS [None]
  - HYPOKALAEMIA [None]
  - INTESTINAL POLYP [None]
  - MANIA [None]
  - MYALGIA [None]
  - ORTHOSTATIC HYPOTENSION [None]
  - PULMONARY EMBOLISM [None]
  - SKELETAL INJURY [None]
  - STEVENS-JOHNSON SYNDROME [None]
  - SWELLING [None]
  - THROMBOCYTHAEMIA [None]
  - URINARY TRACT INFECTION [None]
  - WOUND SECRETION [None]
